FAERS Safety Report 20959957 (Version 5)
Quarter: 2022Q4

REPORT INFORMATION
  Report Type: Spontaneous
  Country: PK (occurrence: PK)
  Receive Date: 20220615
  Receipt Date: 20221006
  Transmission Date: 20230113
  Serious: Yes (Other)
  Sender: FDA-Public Use
  Company Number: PK-PFIZER INC-202200813283

PATIENT
  Age: 46 Year
  Sex: Female

DRUGS (14)
  1. ENBREL [Suspect]
     Active Substance: ETANERCEPT
     Indication: Rheumatoid arthritis
     Dosage: 50 MG, WEEKLY
     Route: 058
     Dates: start: 20211115
  2. ISONIAZID\RIFAMPIN [Concomitant]
     Active Substance: ISONIAZID\RIFAMPIN
     Dosage: UNK
     Dates: start: 202110, end: 202112
  3. CYTOTREXATE [Concomitant]
     Dosage: 1 DF, WEEKLY AFTER BREAKFAST FOR 2 MONTHS
  4. TRIHEMIC 600 MG [Concomitant]
     Dosage: 1 DF, DAILY AFTER BREAKFAST FOR 2 MONTHS
  5. FOLIC ACID [Concomitant]
     Active Substance: FOLIC ACID
     Dosage: 1 DF, DAILY AFTER BREAKFAST ORALLY FOR 2 MONTHS
  6. CELECOXIB [Concomitant]
     Active Substance: CELECOXIB
     Dosage: 2 DF, DAILY IN MORNING AND EVENING AFTER MEAL
  7. Astadol [Concomitant]
     Dosage: 2 DF, DAILY IN MORNING AND EVENING FOR 2 MONTHS
  8. BROMAZEPAM [Concomitant]
     Active Substance: BROMAZEPAM
     Dosage: 1 DF, DAILY  AFTER DINNER ORALLY FOR 2 MONTHS
     Route: 048
  9. PROTHIADEN [Concomitant]
     Active Substance: DOTHIEPIN HYDROCHLORIDE
     Dosage: 1 DF, DAILY AFTER DINNER ORALLY FOR 2 MONTHS
     Route: 048
  10. ARBI D [Concomitant]
     Dosage: 1 DF (150/12.5 MG), DAILY AFTER BREAKFAST FOR 2 MONTHS
  11. COMBIVAIR [Concomitant]
     Dosage: 400 MG, 2X/DAY IN MORNING AND EVENING WITH 1 REVOLIZER CAP THROUGH NASAL ROUTE FOR 2 MONTHS
  12. GLUCOPHAGE [Concomitant]
     Active Substance: METFORMIN HYDROCHLORIDE
     Dosage: 2 DF, DAILY IN MORNING AND EVENING AFTER MEAL ORALLY FOR 2 MONTHS
     Route: 048
  13. DELTACORTRIL [Concomitant]
     Active Substance: PREDNISOLONE
     Dosage: UNK, FOR 10 DAYS
  14. DICLOFENAC SODIUM [Concomitant]
     Active Substance: DICLOFENAC SODIUM
     Dosage: 1+1+1

REACTIONS (7)
  - Diabetes mellitus [Unknown]
  - Weight decreased [Unknown]
  - Arthralgia [Unknown]
  - Joint swelling [Unknown]
  - Anaemia [Unknown]
  - Haemoglobin decreased [Recovering/Resolving]
  - Red blood cell sedimentation rate increased [Unknown]

NARRATIVE: CASE EVENT DATE: 20220114
